FAERS Safety Report 17056646 (Version 1)
Quarter: 2019Q4

REPORT INFORMATION
  Report Type: Spontaneous
  Country: US (occurrence: US)
  Receive Date: 20191121
  Receipt Date: 20191121
  Transmission Date: 20200122
  Serious: No
  Sender: FDA-Public Use
  Company Number: US-TORRENT-00008956

PATIENT
  Sex: Female
  Weight: 65 kg

DRUGS (3)
  1. NEXIUM [Suspect]
     Active Substance: ESOMEPRAZOLE MAGNESIUM
     Indication: ULCER
     Dosage: SINCE 4 YEAR
     Route: 048
     Dates: start: 2015
  2. ESOMEPRAZOLE. [Suspect]
     Active Substance: ESOMEPRAZOLE MAGNESIUM
     Indication: VOMITING
     Dosage: LAST CAPSULE SHE TOOK WEEK AGO
     Route: 048
  3. LORAZEPAM. [Concomitant]
     Active Substance: LORAZEPAM
     Indication: ANXIETY
     Dosage: ONCE AT NIGHT?SINCE MANY YEARS AND STILL TAKING
     Route: 048

REACTIONS (1)
  - Drug ineffective [Unknown]
